FAERS Safety Report 8036957-X (Version None)
Quarter: 2012Q1

REPORT INFORMATION
  Report Type: 
  Country: None (occurrence: None)
  Receive Date: 20120106
  Receipt Date: 20111228
  Transmission Date: 20120608
  Serious: Yes (Other)
  Sender: FDA-Public Use
  Company Number: 2012MA000058

PATIENT
  Age: 20 Year
  Sex: Female

DRUGS (4)
  1. ACETAMINOPHEN W/ CODEINE [Suspect]
     Indication: PAIN
     Dosage: ;QID;
  2. PREGABALIN [Suspect]
     Indication: PAIN
     Dosage: 75 MG;BID;PO
     Route: 048
     Dates: start: 20111025, end: 20111130
  3. NAPROXEN [Suspect]
     Indication: PAIN
     Dosage: 1 DF;TID;PO
     Route: 048
     Dates: start: 20111027, end: 20111205
  4. NORGESTIMATE AND ETHINYL ESTRADIOL [Suspect]
     Indication: CONTRACEPTION

REACTIONS (3)
  - DRUG INTERACTION [None]
  - PREGNANCY ON ORAL CONTRACEPTIVE [None]
  - MATERNAL EXPOSURE DURING PREGNANCY [None]
